FAERS Safety Report 23079638 (Version 1)
Quarter: 2023Q4

REPORT INFORMATION
  Report Type: Spontaneous
  Country: US (occurrence: None)
  Receive Date: 20231018
  Receipt Date: 20231018
  Transmission Date: 20240109
  Serious: Yes (Hospitalization)
  Sender: FDA-Public Use
  Company Number: None

PATIENT
  Sex: Female

DRUGS (19)
  1. AMBRISENTAN [Suspect]
     Active Substance: AMBRISENTAN
     Indication: Pulmonary arterial hypertension
     Dosage: FREQUENCY : DAILY;?
     Route: 048
  2. LORATADINE [Concomitant]
     Active Substance: LORATADINE
  3. LOVASTATIN [Concomitant]
     Active Substance: LOVASTATIN
  4. LASIX [Concomitant]
     Active Substance: FUROSEMIDE
  5. EZFE 200 [Concomitant]
  6. BUSPIRONE HCL [Concomitant]
     Active Substance: BUSPIRONE HYDROCHLORIDE
  7. HYDRALAZINE HCL [Concomitant]
     Active Substance: HYDRALAZINE HYDROCHLORIDE
  8. FOLIC ACID [Concomitant]
     Active Substance: FOLIC ACID
  9. ALLOPURINOL [Concomitant]
     Active Substance: ALLOPURINOL
  10. SENNA [Concomitant]
     Active Substance: SENNA LEAF\SENNOSIDES\SENNOSIDES A AND B
  11. METOPROLOL SUCCINATE [Concomitant]
     Active Substance: METOPROLOL SUCCINATE
  12. PROTONIX [Concomitant]
     Active Substance: PANTOPRAZOLE SODIUM
  13. CARAFATE [Concomitant]
     Active Substance: SUCRALFATE
  14. COLACE [Concomitant]
     Active Substance: DOCUSATE SODIUM
  15. SILDENAFIL CITRATE [Concomitant]
     Active Substance: SILDENAFIL CITRATE
  16. ASPIRIN [Concomitant]
     Active Substance: ASPIRIN
  17. VITAMIN C [Concomitant]
     Active Substance: ASCORBIC ACID
  18. REMERON [Concomitant]
     Active Substance: MIRTAZAPINE
  19. CALCITRIOL [Concomitant]
     Active Substance: CALCITRIOL

REACTIONS (1)
  - Cardiac disorder [None]
